FAERS Safety Report 19549248 (Version 1)
Quarter: 2021Q3

REPORT INFORMATION
  Report Type: Spontaneous
  Country: US (occurrence: US)
  Receive Date: 20210715
  Receipt Date: 20210715
  Transmission Date: 20211014
  Serious: No
  Sender: FDA-Public Use
  Company Number: None

PATIENT
  Age: 34 Year
  Sex: Female
  Weight: 96.7 kg

DRUGS (1)
  1. PACLITAXEL 6MG/ML [Suspect]
     Active Substance: PACLITAXEL
     Indication: BREAST CANCER
     Dosage: ?          OTHER DOSE:80MG/M2;?
     Route: 042
     Dates: start: 20210701, end: 20210712

REACTIONS (6)
  - Dyspepsia [None]
  - Dyspnoea [None]
  - Abdominal pain [None]
  - Oxygen saturation decreased [None]
  - Wheezing [None]
  - Dysphagia [None]

NARRATIVE: CASE EVENT DATE: 20210712
